FAERS Safety Report 4338136-6 (Version None)
Quarter: 2004Q2

REPORT INFORMATION
  Report Type: 
  Country: None (occurrence: None)
  Receive Date: 20040412
  Receipt Date: 20040412
  Transmission Date: 20050107
  Serious: No
  Sender: FDA-Public Use
  Company Number: None

PATIENT
  Age: 74 Year
  Sex: Female
  Weight: 85.2762 kg

DRUGS (1)
  1. NATRECOR [Suspect]
     Indication: CARDIAC FAILURE CONGESTIVE
     Dosage: 6 MCG/L CONTINUOUS IV
     Route: 042
     Dates: start: 20040408, end: 20040409

REACTIONS (1)
  - BLOOD GLUCOSE DECREASED [None]
